FAERS Safety Report 11607931 (Version 2)
Quarter: 2015Q4

REPORT INFORMATION
  Report Type: Spontaneous
  Country: US (occurrence: None)
  Receive Date: 20151007
  Receipt Date: 20151009
  Transmission Date: 20160304
  Serious: Yes (Other)
  Sender: FDA-Public Use
  Company Number: US-MDT-ADR-2015-01913

PATIENT
  Age: 62 Year
  Sex: Female

DRUGS (1)
  1. BACLOFEN INTRATHECAL 2000 MCG/ML [Suspect]
     Active Substance: BACLOFEN
     Dosage: 300 MCG/DAY

REACTIONS (5)
  - Muscle spasms [None]
  - Mental status changes [None]
  - Pruritus [None]
  - Malaise [None]
  - Drug withdrawal syndrome [None]
